FAERS Safety Report 5232774-4 (Version None)
Quarter: 2007Q1

REPORT INFORMATION
  Report Type: 
  Country: None (occurrence: None)
  Receive Date: 20070206
  Receipt Date: 20070206
  Transmission Date: 20070707
  Serious: Yes (Life-Threatening, Hospitalization, Other)
  Sender: FDA-Public Use
  Company Number: None

PATIENT
  Age: 36 Year
  Sex: Female
  Weight: 41.4588 kg

DRUGS (1)
  1. VYTORIN WITH ZETIA 10 MG [Suspect]
     Indication: HYPERTRIGLYCERIDAEMIA
     Dosage: WITH VYTORIN (ZETIA + ZOCOR) WAS ON BEFORE ADMISSION

REACTIONS (1)
  - PANCREATITIS NECROTISING [None]
